FAERS Safety Report 19786915 (Version 7)
Quarter: 2022Q2

REPORT INFORMATION
  Report Type: Report from Study
  Country: JP (occurrence: JP)
  Receive Date: 20210903
  Receipt Date: 20220624
  Transmission Date: 20220721
  Serious: Yes (Life-Threatening, Other)
  Sender: FDA-Public Use
  Company Number: JP-TAKEDA-2021TJP084029

PATIENT
  Age: 24 Year
  Sex: Female
  Weight: 57.7 kg

DRUGS (65)
  1. VORTIOXETINE [Suspect]
     Active Substance: VORTIOXETINE
     Indication: Major depression
     Dosage: 10 MILLIGRAM, QD
     Route: 065
     Dates: start: 20210804
  2. VORTIOXETINE [Suspect]
     Active Substance: VORTIOXETINE
     Dosage: 20 MILLIGRAM, QD
     Route: 065
     Dates: start: 20210823, end: 20211224
  3. HYDROXYZINE PAMOATE [Concomitant]
     Active Substance: HYDROXYZINE PAMOATE
     Dosage: 50 MILLIGRAM, QD
     Route: 048
     Dates: start: 20210628, end: 20210704
  4. HYDROXYZINE PAMOATE [Concomitant]
     Active Substance: HYDROXYZINE PAMOATE
     Dosage: 100 MILLIGRAM, QD
     Route: 048
     Dates: start: 20210705, end: 20210905
  5. HYDROXYZINE PAMOATE [Concomitant]
     Active Substance: HYDROXYZINE PAMOATE
     Dosage: 150 MILLIGRAM, QD
     Route: 048
     Dates: start: 20210906, end: 20210909
  6. HYDROXYZINE PAMOATE [Concomitant]
     Active Substance: HYDROXYZINE PAMOATE
     Dosage: 100 MILLIGRAM, QD
     Route: 048
     Dates: start: 20210910, end: 20211007
  7. HYDROXYZINE PAMOATE [Concomitant]
     Active Substance: HYDROXYZINE PAMOATE
     Dosage: 150 MILLIGRAM, QD
     Route: 048
     Dates: start: 20211008, end: 20211107
  8. HYDROXYZINE PAMOATE [Concomitant]
     Active Substance: HYDROXYZINE PAMOATE
     Dosage: 100 MILLIGRAM, QD
     Route: 048
     Dates: start: 20211108, end: 20211111
  9. HYDROXYZINE PAMOATE [Concomitant]
     Active Substance: HYDROXYZINE PAMOATE
     Dosage: 50 MILLIGRAM, QD
     Route: 048
     Dates: start: 20211112, end: 20211114
  10. LORAZEPAM [Concomitant]
     Active Substance: LORAZEPAM
     Dosage: 1 MILLIGRAM, QD
     Route: 048
     Dates: start: 20210531, end: 20210606
  11. LORAZEPAM [Concomitant]
     Active Substance: LORAZEPAM
     Dosage: 1 MILLIGRAM, TID
     Route: 048
     Dates: start: 20210614, end: 20210906
  12. LORAZEPAM [Concomitant]
     Active Substance: LORAZEPAM
     Dosage: 1 MILLIGRAM, QD
     Route: 048
     Dates: start: 20210906, end: 20210909
  13. LORAZEPAM [Concomitant]
     Active Substance: LORAZEPAM
     Dosage: 1 MILLIGRAM, TID
     Route: 048
     Dates: start: 20210910, end: 20211112
  14. LORAZEPAM [Concomitant]
     Active Substance: LORAZEPAM
     Dosage: 0.5 MILLIGRAM, TID
     Route: 048
     Dates: start: 20211112
  15. VALPROATE SODIUM [Concomitant]
     Active Substance: VALPROATE SODIUM
     Indication: Major depression
     Dosage: 100 MILLIGRAM, TID
     Route: 048
     Dates: start: 20210407, end: 20210519
  16. VALPROATE SODIUM [Concomitant]
     Active Substance: VALPROATE SODIUM
     Dosage: 100 MILLIGRAM, TID
     Route: 048
     Dates: start: 20210623, end: 20210628
  17. VALPROATE SODIUM [Concomitant]
     Active Substance: VALPROATE SODIUM
     Dosage: 200 MILLIGRAM, TID
     Route: 048
     Dates: start: 20210628, end: 20210906
  18. VALPROATE SODIUM [Concomitant]
     Active Substance: VALPROATE SODIUM
     Dosage: 200 MILLIGRAM, QD
     Route: 048
     Dates: start: 20210906, end: 20210909
  19. VALPROATE SODIUM [Concomitant]
     Active Substance: VALPROATE SODIUM
     Dosage: 200 MILLIGRAM, TID
     Route: 048
     Dates: start: 20210910, end: 20211011
  20. VALPROATE SODIUM [Concomitant]
     Active Substance: VALPROATE SODIUM
     Dosage: 100 MILLIGRAM, TID
     Route: 048
     Dates: start: 20211011, end: 20211012
  21. HERBALS [Concomitant]
     Active Substance: HERBALS
     Indication: Premenstrual syndrome
     Dosage: 6 DOSAGE FORM, TID
     Route: 048
     Dates: start: 20210524, end: 20210804
  22. VITAMINS [Concomitant]
     Active Substance: VITAMINS
     Indication: Heat exhaustion
     Dosage: 2 DOSAGE FORM, TID
     Route: 048
     Dates: start: 20210627, end: 20210906
  23. VITAMINS [Concomitant]
     Active Substance: VITAMINS
     Dosage: 2 DOSAGE FORM, TID
     Route: 048
     Dates: start: 20211008, end: 20211014
  24. LABELLEFILLE 28 [Concomitant]
     Indication: Premenstrual syndrome
     Dosage: 1 DOSAGE FORM, QD
     Route: 048
     Dates: start: 20201101
  25. SULPIRIDE [Concomitant]
     Active Substance: SULPIRIDE
     Indication: Prophylaxis
     Dosage: 50 MILLIGRAM, QD
     Route: 048
     Dates: start: 20210804, end: 20211107
  26. MARZULENE COMBINATION [Concomitant]
     Indication: Prophylaxis
     Dosage: 1 MILLIGRAM, TID
     Route: 048
     Dates: start: 20210818, end: 20210906
  27. MARZULENE COMBINATION [Concomitant]
     Dosage: 1 MILLIGRAM, QD
     Route: 048
     Dates: start: 20210906
  28. FLUNITRAZEPAM [Concomitant]
     Active Substance: FLUNITRAZEPAM
     Dosage: 1 MILLIGRAM, QD
     Route: 048
     Dates: start: 20210607, end: 20210613
  29. FLUNITRAZEPAM [Concomitant]
     Active Substance: FLUNITRAZEPAM
     Dosage: 2 MILLIGRAM, QD
     Route: 048
     Dates: start: 20210614, end: 20210905
  30. FLUNITRAZEPAM [Concomitant]
     Active Substance: FLUNITRAZEPAM
     Dosage: 2 MILLIGRAM, QD
     Route: 048
     Dates: start: 20210910, end: 20211114
  31. FLUNITRAZEPAM [Concomitant]
     Active Substance: FLUNITRAZEPAM
     Dosage: 1 MILLIGRAM, QD
     Route: 048
     Dates: start: 20211115, end: 20211117
  32. FLUNITRAZEPAM [Concomitant]
     Active Substance: FLUNITRAZEPAM
     Dosage: 2 MILLIGRAM, QD
     Route: 048
     Dates: start: 20211118, end: 20211125
  33. FLUNITRAZEPAM [Concomitant]
     Active Substance: FLUNITRAZEPAM
     Dosage: 1 MILLIGRAM, QD
     Route: 048
     Dates: start: 20211126, end: 20211209
  34. MOSAPRIDE CITRATE [Concomitant]
     Active Substance: MOSAPRIDE CITRATE
     Indication: Prophylaxis
     Dosage: 1 DOSAGE FORM, TID
     Route: 048
     Dates: start: 20210804, end: 20210906
  35. MOSAPRIDE CITRATE [Concomitant]
     Active Substance: MOSAPRIDE CITRATE
     Dosage: 1 MILLIGRAM, QD
     Route: 048
     Dates: start: 20210906, end: 20211125
  36. MOSAPRIDE CITRATE [Concomitant]
     Active Substance: MOSAPRIDE CITRATE
     Dosage: 3 MILLIGRAM, TID
     Route: 048
     Dates: start: 20211126
  37. HERBALS [Concomitant]
     Active Substance: HERBALS
     Indication: Premenstrual syndrome
     Dosage: 6 DOSAGE FORM, TID
     Route: 048
     Dates: start: 20210524, end: 20210804
  38. REXULTI [Concomitant]
     Active Substance: BREXPIPRAZOLE
     Dosage: 0.5 MILLIGRAM, QD
     Route: 048
     Dates: start: 20210906, end: 20211007
  39. COMIRNATY [Concomitant]
     Active Substance: TOZINAMERAN
     Indication: COVID-19 prophylaxis
     Dosage: 0.3 MILLILITER
     Route: 030
     Dates: start: 20210901, end: 20210901
  40. COMIRNATY [Concomitant]
     Active Substance: TOZINAMERAN
     Dosage: 0.3 MILLILITER
     Route: 030
     Dates: start: 20210930, end: 20210930
  41. CIMETIDINE [Concomitant]
     Active Substance: CIMETIDINE
     Dosage: 200 MILLIGRAM, TID
     Route: 048
     Dates: start: 20211006, end: 20211015
  42. ARIPIPRAZOLE [Concomitant]
     Active Substance: ARIPIPRAZOLE
     Indication: Major depression
     Dosage: 3 MILLIGRAM, QD
     Route: 048
     Dates: start: 20210426, end: 20210518
  43. ARIPIPRAZOLE [Concomitant]
     Active Substance: ARIPIPRAZOLE
     Dosage: 3 MILLIGRAM, QD
     Route: 048
     Dates: start: 20210524, end: 20210606
  44. ARIPIPRAZOLE [Concomitant]
     Active Substance: ARIPIPRAZOLE
     Dosage: 1 MILLIGRAM, QD
     Route: 048
     Dates: start: 20210524, end: 20210606
  45. ARIPIPRAZOLE [Concomitant]
     Active Substance: ARIPIPRAZOLE
     Dosage: 1 MILLIGRAM, BID
     Route: 048
     Dates: start: 20210607, end: 20210614
  46. ARIPIPRAZOLE [Concomitant]
     Active Substance: ARIPIPRAZOLE
     Dosage: 1 MILLIGRAM, TID
     Route: 048
     Dates: start: 20210614, end: 20210618
  47. ARIPIPRAZOLE [Concomitant]
     Active Substance: ARIPIPRAZOLE
     Dosage: 3 MILLIGRAM, QD
     Route: 048
     Dates: start: 20211008, end: 20211013
  48. ARIPIPRAZOLE [Concomitant]
     Active Substance: ARIPIPRAZOLE
     Dosage: 3 MILLIGRAM, BID
     Route: 048
     Dates: start: 20211014, end: 20211128
  49. ARIPIPRAZOLE [Concomitant]
     Active Substance: ARIPIPRAZOLE
     Dosage: 2 MILLIGRAM, BID
     Route: 048
     Dates: start: 20211118
  50. CARBAMAZEPINE [Concomitant]
     Active Substance: CARBAMAZEPINE
     Dosage: 50 MILLIGRAM, QD
     Route: 048
     Dates: start: 20211011, end: 20211011
  51. CARBAMAZEPINE [Concomitant]
     Active Substance: CARBAMAZEPINE
     Dosage: 100 MILLIGRAM, QD
     Route: 048
     Dates: start: 20211012, end: 20211012
  52. CARBAMAZEPINE [Concomitant]
     Active Substance: CARBAMAZEPINE
     Dosage: 150 MILLIGRAM, QD
     Route: 048
     Dates: start: 20211014, end: 20211014
  53. CARBAMAZEPINE [Concomitant]
     Active Substance: CARBAMAZEPINE
     Dosage: 200 MILLIGRAM, QD
     Route: 048
     Dates: start: 20211015, end: 20211111
  54. CARBAMAZEPINE [Concomitant]
     Active Substance: CARBAMAZEPINE
     Dosage: 100 MILLIGRAM, QD
     Route: 048
     Dates: start: 20211112, end: 20211209
  55. CARBAMAZEPINE [Concomitant]
     Active Substance: CARBAMAZEPINE
     Dosage: 150 MILLIGRAM, QD
     Route: 048
     Dates: start: 20211210, end: 20211215
  56. CARBAMAZEPINE [Concomitant]
     Active Substance: CARBAMAZEPINE
     Dosage: 200 MILLIGRAM, QD
     Route: 048
     Dates: start: 20211216
  57. TRIHEXYPHENIDYL HYDROCHLORIDE [Concomitant]
     Active Substance: TRIHEXYPHENIDYL HYDROCHLORIDE
     Indication: Prophylaxis
     Dosage: 1 DOSAGE FORM, BID
     Route: 048
     Dates: start: 20210607, end: 20210618
  58. TRIHEXYPHENIDYL HYDROCHLORIDE [Concomitant]
     Active Substance: TRIHEXYPHENIDYL HYDROCHLORIDE
     Dosage: 1 DOSAGE FORM, TID
     Route: 048
     Dates: start: 20210618, end: 20210623
  59. TRIHEXYPHENIDYL HYDROCHLORIDE [Concomitant]
     Active Substance: TRIHEXYPHENIDYL HYDROCHLORIDE
     Dosage: 1 DOSAGE FORM, BID
     Route: 048
     Dates: start: 20210623, end: 20210628
  60. TRIHEXYPHENIDYL HYDROCHLORIDE [Concomitant]
     Active Substance: TRIHEXYPHENIDYL HYDROCHLORIDE
     Dosage: 0.5 DOSAGE FORM, BID
     Route: 048
     Dates: start: 20210628, end: 20210705
  61. TRIHEXYPHENIDYL HYDROCHLORIDE [Concomitant]
     Active Substance: TRIHEXYPHENIDYL HYDROCHLORIDE
     Dosage: 0.5 MILLIGRAM, BID
     Route: 048
     Dates: start: 20211014, end: 20211118
  62. TRIHEXYPHENIDYL HYDROCHLORIDE [Concomitant]
     Active Substance: TRIHEXYPHENIDYL HYDROCHLORIDE
     Dosage: 1 DOSAGE FORM, BID
     Route: 048
     Dates: start: 20211118
  63. RABEPRAZOLE SODIUM [Concomitant]
     Active Substance: RABEPRAZOLE SODIUM
     Dosage: 10 MILLIGRAM, QD
     Route: 048
     Dates: start: 20211015
  64. DAYVIGO [Concomitant]
     Active Substance: LEMBOREXANT
     Dosage: 5 MILLIGRAM, QD
     Route: 048
     Dates: start: 20211126, end: 20211209
  65. DAYVIGO [Concomitant]
     Active Substance: LEMBOREXANT
     Dosage: 10 MILLIGRAM, QD
     Route: 048
     Dates: start: 20211210

REACTIONS (2)
  - Suicide attempt [Recovered/Resolved]
  - Nasopharyngitis [Recovered/Resolved]

NARRATIVE: CASE EVENT DATE: 20210830
